FAERS Safety Report 10152998 (Version 2)
Quarter: 2014Q2

REPORT INFORMATION
  Report Type: Spontaneous
  Country: TR (occurrence: TR)
  Receive Date: 20140505
  Receipt Date: 20140519
  Transmission Date: 20141212
  Serious: Yes (Hospitalization)
  Sender: FDA-Public Use
  Company Number: TR-TEVA-477812ISR

PATIENT
  Age: 26 Year
  Sex: Female

DRUGS (6)
  1. VINCRISTINE [Suspect]
     Indication: IMMUNE THROMBOCYTOPENIC PURPURA
     Dosage: 1.5 MILLIGRAM DAILY;
     Route: 065
  2. DANAZOL [Interacting]
     Indication: IMMUNE THROMBOCYTOPENIC PURPURA
     Dosage: 600 MILLIGRAM DAILY;
     Route: 065
  3. ELTROMBOPAG [Interacting]
     Indication: IMMUNE THROMBOCYTOPENIC PURPURA
     Dosage: 50 MILLIGRAM DAILY;
     Route: 065
  4. ELTROMBOPAG [Interacting]
     Indication: IMMUNE THROMBOCYTOPENIC PURPURA
     Dosage: 75 MILLIGRAM DAILY;
     Route: 065
  5. METHYLPREDNISOLONE [Concomitant]
     Indication: IMMUNE THROMBOCYTOPENIC PURPURA
     Dosage: 16 MILLIGRAM DAILY;
     Route: 065
  6. IMMUNE GLOBULIN [Concomitant]
     Indication: IMMUNE THROMBOCYTOPENIC PURPURA
     Dosage: .4 KILOGRAM DAILY;
     Route: 042

REACTIONS (3)
  - Intracardiac thrombus [Unknown]
  - Pulmonary thrombosis [Unknown]
  - Drug interaction [Unknown]
